FAERS Safety Report 9506025 (Version 1)
Quarter: 2013Q1

REPORT INFORMATION
  Report Type: Spontaneous
  Country: US (occurrence: None)
  Receive Date: 20130201
  Receipt Date: 20130201
  Transmission Date: 20140127
  Serious: No
  Sender: FDA-Public Use
  Company Number: US-010528

PATIENT
  Age: 55 Year
  Sex: Female
  Weight: 68.04 kg

DRUGS (5)
  1. PICOLAX /00755101/ (NOT SPECIFIED) [Suspect]
     Indication: COLONOSCOPY
     Dosage: USING A SPLIT DOSE- 1 PACKET MIXED IN 5OZ OF WATER ORAL
     Route: 048
     Dates: start: 20130103
  2. LOSARTAN [Concomitant]
  3. LEVOXYL [Concomitant]
  4. NEXIUM /01479302/ [Concomitant]
  5. ZETIA [Concomitant]

REACTIONS (1)
  - Drug ineffective [None]
